FAERS Safety Report 9150227 (Version 1)
Quarter: 2013Q1

REPORT INFORMATION
  Report Type: Spontaneous
  Country: US (occurrence: None)
  Receive Date: 20130228
  Receipt Date: 20130228
  Transmission Date: 20140127
  Serious: No
  Sender: FDA-Public Use
  Company Number: None

PATIENT
  Age: 79 Year
  Sex: Male

DRUGS (1)
  1. PANTOPRAZOLE [Suspect]
     Route: 048
     Dates: start: 20120130, end: 20130209

REACTIONS (1)
  - Thrombocytopenia [None]
